FAERS Safety Report 8902096 (Version 4)
Quarter: 2013Q3

REPORT INFORMATION
  Report Type: Report from Study
  Country: US (occurrence: US)
  Receive Date: 20121112
  Receipt Date: 20130820
  Transmission Date: 20140515
  Serious: Yes (Hospitalization)
  Sender: FDA-Public Use
  Company Number: US-ELI_LILLY_AND_COMPANY-US201211001206

PATIENT
  Age: 73 Year
  Sex: Female

DRUGS (7)
  1. TERIPARATIDE [Suspect]
     Indication: OSTEOPOROSIS
     Dosage: 20 UG, QD
     Dates: start: 20120828
  2. TERIPARATIDE [Suspect]
     Dosage: 20 UG, QD
  3. ARMOUR THYROID [Concomitant]
  4. HYZAAR [Concomitant]
  5. PREDNISONE [Concomitant]
  6. METOPROLOL [Concomitant]
  7. PRILOSEC                           /00661201/ [Concomitant]

REACTIONS (6)
  - Atrial fibrillation [Unknown]
  - General physical condition abnormal [Unknown]
  - Thyroid disorder [Recovered/Resolved]
  - Lower respiratory tract infection [Unknown]
  - Incorrect product storage [Unknown]
  - Diabetes mellitus [Unknown]
